FAERS Safety Report 7381884-4 (Version None)
Quarter: 2011Q1

REPORT INFORMATION
  Report Type: 
  Country: None (occurrence: None)
  Receive Date: 20110329
  Receipt Date: 20110317
  Transmission Date: 20110831
  Serious: Yes (Other)
  Sender: FDA-Public Use
  Company Number: JP-CELGENEUS-087-21880-10101334

PATIENT
  Sex: Female
  Weight: 43.3 kg

DRUGS (26)
  1. NABOAL GEL [Concomitant]
     Indication: MULTIPLE MYELOMA
     Dosage: 1 TUBE
     Route: 065
     Dates: start: 20100906, end: 20101019
  2. LENADEX [Suspect]
     Dosage: 4 MILLIGRAM
     Route: 048
     Dates: start: 20100910, end: 20100910
  3. EPADEL [Concomitant]
     Dosage: 600MG, 1 PACK
     Route: 048
     Dates: start: 20100910
  4. MAGMITT [Concomitant]
     Dosage: 2 TABLET
     Route: 048
  5. NAUZELIN [Concomitant]
     Dosage: 1 TABLET
     Route: 048
     Dates: start: 20101005, end: 20101023
  6. REVLIMID [Suspect]
     Dosage: 15 MILLIGRAM
     Route: 048
     Dates: start: 20101005, end: 20101015
  7. LENADEX [Suspect]
     Dosage: 8 MILLIGRAM
     Route: 048
     Dates: start: 20101008, end: 20101008
  8. BISPHOSPHONATES [Concomitant]
     Route: 065
     Dates: end: 20100901
  9. MUCOSTA [Concomitant]
     Dosage: 4 TABLET
     Route: 048
     Dates: start: 20100903
  10. LENADEX [Suspect]
     Dosage: 12 MILLIGRAM
     Route: 048
     Dates: start: 20101007, end: 20101007
  11. MUCOSTA [Concomitant]
     Indication: PROPHYLAXIS
  12. BENET [Concomitant]
     Dosage: 1 TABLET
     Route: 048
     Dates: end: 20100915
  13. LENADEX [Suspect]
     Dosage: 12 MILLIGRAM
     Route: 048
     Dates: start: 20100908, end: 20100908
  14. LENADEX [Suspect]
     Indication: MULTIPLE MYELOMA
     Dosage: 20 MILLIGRAM
     Route: 048
     Dates: start: 20100906, end: 20100907
  15. LIVOSTIN [Concomitant]
     Route: 055
     Dates: start: 20100903
  16. EPADEL [Concomitant]
     Indication: PROPHYLAXIS
  17. REVLIMID [Suspect]
     Indication: MULTIPLE MYELOMA
     Dosage: 15 MILLIGRAM
     Route: 048
     Dates: start: 20100906, end: 20100924
  18. LENADEX [Suspect]
     Dosage: 20 MILLIGRAM
     Route: 048
     Dates: start: 20101005, end: 20101006
  19. TRINOSIN [Concomitant]
     Dosage: 3 PACKS
     Route: 048
     Dates: start: 20100903, end: 20100909
  20. MARZULENE [Concomitant]
     Dosage: 3 PACKS
     Route: 048
     Dates: start: 20100910
  21. FORSENID [Concomitant]
     Dosage: 2 TABLET
     Route: 048
     Dates: start: 20100910
  22. LENADEX [Suspect]
     Dosage: 8 MILLIGRAM
     Route: 048
     Dates: start: 20100909, end: 20100909
  23. LENADEX [Suspect]
     Dosage: 4 MILLIGRAM
     Route: 048
     Dates: start: 20101009, end: 20101009
  24. BACTRIM [Concomitant]
     Indication: PROPHYLAXIS
     Dosage: 2 TABLET
     Route: 048
     Dates: start: 20100906, end: 20101012
  25. INTENURSE PAP [Concomitant]
     Indication: MULTIPLE MYELOMA
     Dosage: 2 PATCHES
     Route: 065
     Dates: start: 20100903, end: 20100923
  26. ROHYPNOL [Concomitant]
     Dosage: 1 TABLET
     Route: 048

REACTIONS (3)
  - OSTEONECROSIS OF JAW [None]
  - RASH [None]
  - GINGIVITIS [None]
